FAERS Safety Report 16536357 (Version 1)
Quarter: 2019Q3

REPORT INFORMATION
  Report Type: Spontaneous
  Country: US (occurrence: US)
  Receive Date: 20190705
  Receipt Date: 20190705
  Transmission Date: 20191004
  Serious: Yes (Hospitalization)
  Sender: FDA-Public Use
  Company Number: US-ZYDUS-038489

PATIENT
  Age: 68 Year
  Sex: Female

DRUGS (1)
  1. WARFARIN [Suspect]
     Active Substance: WARFARIN
     Indication: ATRIAL FIBRILLATION
     Route: 065

REACTIONS (7)
  - Skin induration [Recovered/Resolved]
  - Pain in extremity [Unknown]
  - Calciphylaxis [Unknown]
  - Pain of skin [Recovered/Resolved]
  - Klebsiella infection [Unknown]
  - Skin ulcer [Recovered/Resolved]
  - Skin lesion [Recovered/Resolved]
